FAERS Safety Report 7989627-8 (Version None)
Quarter: 2011Q4

REPORT INFORMATION
  Report Type: 
  Country: None (occurrence: None)
  Receive Date: 20111219
  Receipt Date: 20110509
  Transmission Date: 20120403
  Serious: No
  Sender: FDA-Public Use
  Company Number: US-ASTRAZENECA-2010SE54334

PATIENT
  Age: 67 Year
  Sex: Male
  Weight: 86.2 kg

DRUGS (3)
  1. METOPROLOL TARTRATE [Concomitant]
  2. WARFARIN SODIUM [Concomitant]
  3. CRESTOR [Suspect]
     Indication: HYPERCHOLESTEROLAEMIA
     Route: 048
     Dates: start: 20100801, end: 20101201

REACTIONS (7)
  - BLEEDING TIME PROLONGED [None]
  - NASOPHARYNGITIS [None]
  - ATRIAL FIBRILLATION [None]
  - DRUG DOSE OMISSION [None]
  - FATIGUE [None]
  - MUSCULOSKELETAL PAIN [None]
  - WRONG TECHNIQUE IN DRUG USAGE PROCESS [None]
